FAERS Safety Report 7735733-2 (Version None)
Quarter: 2011Q3

REPORT INFORMATION
  Report Type: 
  Country: None (occurrence: None)
  Receive Date: 20110908
  Receipt Date: 20110829
  Transmission Date: 20111222
  Serious: Yes (Hospitalization)
  Sender: FDA-Public Use
  Company Number: US-BIOGENIDEC-2011BI033625

PATIENT
  Age: 63 Year
  Sex: Male

DRUGS (1)
  1. TYSABRI [Suspect]
     Indication: MULTIPLE SCLEROSIS
     Route: 042
     Dates: start: 20110727, end: 20110727

REACTIONS (10)
  - ABDOMINAL PAIN UPPER [None]
  - DEHYDRATION [None]
  - NAUSEA [None]
  - HEART RATE INCREASED [None]
  - ASTHENIA [None]
  - DIARRHOEA [None]
  - VOMITING [None]
  - GASTRIC DISORDER [None]
  - HEADACHE [None]
  - LOSS OF CONSCIOUSNESS [None]
